FAERS Safety Report 15930224 (Version 2)
Quarter: 2019Q1

REPORT INFORMATION
  Report Type: Report from Study
  Country: None (occurrence: CA)
  Receive Date: 20190207
  Receipt Date: 20190226
  Transmission Date: 20190417
  Serious: Yes (Other)
  Sender: FDA-Public Use
  Company Number: CA-ABBVIE-19K-028-2650082-00

PATIENT
  Age: 39 Year
  Sex: Female

DRUGS (1)
  1. HUMIRA [Suspect]
     Active Substance: ADALIMUMAB
     Indication: CROHN^S DISEASE
     Route: 058
     Dates: start: 20101222

REACTIONS (29)
  - Impaired quality of life [Unknown]
  - Coccydynia [Unknown]
  - Depressed mood [Unknown]
  - Burning sensation [Not Recovered/Not Resolved]
  - Arthritis [Unknown]
  - Musculoskeletal chest pain [Not Recovered/Not Resolved]
  - Drug effect incomplete [Unknown]
  - Peripheral swelling [Unknown]
  - Feeling abnormal [Not Recovered/Not Resolved]
  - Fatigue [Not Recovered/Not Resolved]
  - Diarrhoea [Recovered/Resolved]
  - Arthralgia [Not Recovered/Not Resolved]
  - Pain in extremity [Unknown]
  - Weight decreased [Not Recovered/Not Resolved]
  - Abdominal distension [Not Recovered/Not Resolved]
  - Suicidal ideation [Unknown]
  - Psoriatic arthropathy [Unknown]
  - Hypokalaemia [Unknown]
  - Arthropathy [Unknown]
  - Erythema [Not Recovered/Not Resolved]
  - Malaise [Unknown]
  - Crying [Unknown]
  - Skin fissures [Unknown]
  - Fibromyalgia [Not Recovered/Not Resolved]
  - Crohn^s disease [Unknown]
  - Nail disorder [Not Recovered/Not Resolved]
  - Sacroiliitis [Not Recovered/Not Resolved]
  - Abdominal pain [Not Recovered/Not Resolved]
  - Chest pain [Unknown]

NARRATIVE: CASE EVENT DATE: 2015
